FAERS Safety Report 6045634-6 (Version None)
Quarter: 2009Q1

REPORT INFORMATION
  Report Type: 
  Country: None (occurrence: None)
  Receive Date: 20090121
  Receipt Date: 20090119
  Transmission Date: 20090719
  Serious: Yes (Hospitalization)
  Sender: FDA-Public Use
  Company Number: FR-WYE-G02960309

PATIENT
  Sex: Male

DRUGS (4)
  1. RHINADVIL [Suspect]
     Indication: NASOPHARYNGITIS
     Route: 048
     Dates: start: 20081223, end: 20081224
  2. ZANIDIP [Concomitant]
     Dosage: UNKNOWN
     Route: 048
  3. COTAREG [Concomitant]
     Dosage: UNKNOWN
     Route: 048
  4. EFFERALGAN [Suspect]
     Indication: HEADACHE
     Dosage: ONE SINGLE DOSE
     Route: 048
     Dates: start: 20081224, end: 20081224

REACTIONS (5)
  - ANAPHYLACTIC SHOCK [None]
  - FEELING HOT [None]
  - HYPERHIDROSIS [None]
  - RASH [None]
  - SPEECH DISORDER [None]
